FAERS Safety Report 24303201 (Version 1)
Quarter: 2024Q3

REPORT INFORMATION
  Report Type: Spontaneous
  Country: US (occurrence: None)
  Receive Date: 20240909
  Receipt Date: 20240909
  Transmission Date: 20241016
  Serious: Yes (Hospitalization)
  Sender: Public
  Company Number: None

PATIENT
  Age: 74 Year
  Sex: Female

DRUGS (1)
  1. CARVYKTI [Suspect]
     Active Substance: CILTACABTAGENE AUTOLEUCEL

REACTIONS (4)
  - Asthenia [None]
  - Myopathy [None]
  - Polyneuropathy [None]
  - Guillain-Barre syndrome [None]

NARRATIVE: CASE EVENT DATE: 20240816
